FAERS Safety Report 16704116 (Version 1)
Quarter: 2019Q3

REPORT INFORMATION
  Report Type: Report from Study
  Country: PT (occurrence: PT)
  Receive Date: 20190814
  Receipt Date: 20190814
  Transmission Date: 20191004
  Serious: Yes (Hospitalization)
  Sender: FDA-Public Use
  Company Number: PT-MYLANLABS-2019M1076140

PATIENT
  Age: 71 Year
  Sex: Female

DRUGS (23)
  1. GABAPENTIN. [Concomitant]
     Active Substance: GABAPENTIN
     Dosage: UNK,ONGOING = CHECKED
     Route: 065
  2. FENOLIP                            /00082102/ [Concomitant]
     Dosage: UNK,ONGOING = CHECKED
     Route: 065
     Dates: start: 20181115
  3. DEXAMETHASONE. [Concomitant]
     Active Substance: DEXAMETHASONE
     Dosage: UNK,ONGOING = CHECKED
     Route: 065
  4. CLAVULANIC ACID [Concomitant]
     Active Substance: CLAVULANIC ACID
     Indication: RESPIRATORY TRACT INFECTION
     Dosage: UNK,ONGOING = NOT CHECKED
     Route: 065
     Dates: start: 20181203, end: 20181210
  5. TRASTUZUMAB. [Suspect]
     Active Substance: TRASTUZUMAB
     Indication: BREAST CANCER
     Dosage: 600 MILLIGRAM, Q3W,MOST RECENT DOSE PRIOR TO THE EVENT: 12/APR/2018
     Route: 058
     Dates: start: 20180301
  6. PANTOPRAZOLE [Concomitant]
     Active Substance: PANTOPRAZOLE
     Dosage: UNK,ONGOING = CHECKED
     Route: 065
  7. ALPRAZOLAM. [Concomitant]
     Active Substance: ALPRAZOLAM
     Dosage: UNK,ONGOING = CHECKED
     Route: 065
  8. CLARITHROMYCIN. [Concomitant]
     Active Substance: CLARITHROMYCIN
     Indication: RESPIRATORY TRACT INFECTION
     Dosage: UNK,ONGOING = NOT CHECKED
     Route: 065
     Dates: start: 20181203, end: 20181210
  9. LETROZOLE. [Suspect]
     Active Substance: LETROZOLE
     Indication: BREAST CANCER
     Dosage: 2.5 MILLIGRAM, QD
     Route: 048
     Dates: start: 20180823
  10. AMOXICILLIN. [Concomitant]
     Active Substance: AMOXICILLIN
     Indication: RESPIRATORY TRACT INFECTION
     Dosage: UNK,ONGOING = NOT CHECKED
     Route: 065
     Dates: start: 20181203, end: 20181210
  11. PERTUZUMAB. [Suspect]
     Active Substance: PERTUZUMAB
     Indication: BREAST CANCER
     Dosage: 840 MILLIGRAM, Q3W,MOST RECENT DOSE PRIOR TO THE EVENT: 12/APR/2018
     Route: 042
     Dates: start: 20180322
  12. LEVETIRACETAM. [Concomitant]
     Active Substance: LEVETIRACETAM
     Dosage: UNK,ONGOING = CHECKED
     Route: 065
     Dates: start: 20180504
  13. ABSTRAL [Concomitant]
     Active Substance: FENTANYL CITRATE
     Dosage: UNK,ONGOING = CHECKED
     Route: 065
  14. PITAVASTATIN. [Concomitant]
     Active Substance: PITAVASTATIN CALCIUM
     Dosage: UNK,ONGOING = CHECKED
     Route: 065
  15. LACTULOSE. [Concomitant]
     Active Substance: LACTULOSE
     Dosage: UNK,ONGOING = CHECKED
     Route: 065
  16. DEXAMETHASONE. [Concomitant]
     Active Substance: DEXAMETHASONE
     Dosage: UNK,ONGOING = CHECKED
     Route: 065
     Dates: start: 20181030
  17. FILOTEMPO [Concomitant]
     Dosage: UNK,ONGOING = CHECKED
     Route: 065
  18. DOCETAXEL. [Suspect]
     Active Substance: DOCETAXEL
     Indication: BREAST CANCER
     Dosage: 120 MILLIGRAM, Q3W
     Route: 042
     Dates: start: 20180301, end: 20180731
  19. BRICANYL [Concomitant]
     Active Substance: TERBUTALINE SULFATE
     Dosage: UNK,ONGOING = CHECKED
     Route: 065
  20. TRANSTEC [Concomitant]
     Active Substance: BUPRENORPHINE
     Dosage: UNK,ONGOING = CHECKED
     Route: 065
  21. SUPRALIP [Concomitant]
     Active Substance: FENOFIBRATE
     Dosage: UNK,ONGOING = CHECKED
     Route: 065
  22. CODEINE PHOSPHATE W/PARACETAMOL [Concomitant]
     Active Substance: ACETAMINOPHEN\CODEINE PHOSPHATE
     Dosage: UNK,ONGOING = CHECKED
     Route: 065
  23. CELEBREX [Concomitant]
     Active Substance: CELECOXIB
     Dosage: UNK
     Route: 065

REACTIONS (2)
  - Condition aggravated [Recovered/Resolved]
  - Respiratory tract infection [Recovered/Resolved]

NARRATIVE: CASE EVENT DATE: 20181003
